FAERS Safety Report 7340084-4 (Version None)
Quarter: 2011Q1

REPORT INFORMATION
  Report Type: 
  Country: None (occurrence: None)
  Receive Date: 20110309
  Receipt Date: 20110302
  Transmission Date: 20110831
  Serious: Yes (Hospitalization, Other)
  Sender: FDA-Public Use
  Company Number: PHHY2011JP10672

PATIENT
  Sex: Male

DRUGS (30)
  1. CICLOSPORIN [Suspect]
     Dosage: 135 MG,
     Route: 048
     Dates: start: 20000601, end: 20000611
  2. CICLOSPORIN [Suspect]
     Dosage: 140 MG,
     Route: 048
     Dates: start: 20000707, end: 20000712
  3. CICLOSPORIN [Suspect]
     Dosage: 120 MG,
     Route: 048
     Dates: start: 20000713, end: 20000721
  4. CICLOSPORIN [Suspect]
     Dosage: 200 MG,
     Route: 048
     Dates: start: 20000823, end: 20010205
  5. CICLOSPORIN [Suspect]
     Dosage: 220 MG,
     Route: 048
     Dates: start: 20000804, end: 20000820
  6. CICLOSPORIN [Suspect]
     Dosage: 150 MG,
     Route: 048
     Dates: start: 20010219, end: 20010304
  7. CICLOSPORIN [Suspect]
     Dosage: 135 MG,
     Route: 048
     Dates: start: 20090717, end: 20091126
  8. MYCOPHENOLATE MOFETIL [Concomitant]
     Indication: HEART TRANSPLANT
     Dosage: UNK
     Route: 048
     Dates: start: 20010424, end: 20110107
  9. CICLOSPORIN [Suspect]
     Dosage: 140 MG,
     Route: 048
     Dates: start: 20000615, end: 20000615
  10. CICLOSPORIN [Suspect]
     Dosage: 120 MG,
     Route: 048
     Dates: start: 20000706, end: 20000706
  11. CICLOSPORIN [Suspect]
     Dosage: 250 MG,
     Route: 048
     Dates: start: 20000503, end: 20000503
  12. CICLOSPORIN [Suspect]
     Dosage: 200 MG,
     Route: 048
     Dates: start: 20000504, end: 20000504
  13. CICLOSPORIN [Suspect]
     Dosage: 175 MG,
     Route: 048
     Dates: start: 20000505, end: 20000511
  14. CICLOSPORIN [Suspect]
     Dosage: 120 MG,
     Route: 048
     Dates: start: 20000531, end: 20000531
  15. CICLOSPORIN [Suspect]
     Dosage: 150 MG,
     Route: 048
     Dates: start: 20000612, end: 20000614
  16. CICLOSPORIN [Suspect]
     Dosage: 125 MG,
     Dates: start: 20010305, end: 20090124
  17. PREDONINE [Suspect]
     Indication: HEART TRANSPLANT
     Dosage: UNK
     Route: 048
     Dates: start: 20000429, end: 20050124
  18. AZATHIOPRINE [Concomitant]
     Indication: HEART TRANSPLANT
     Dosage: UNK
     Route: 048
     Dates: start: 20000425, end: 20010423
  19. CICLOSPORIN [Suspect]
     Dosage: 175 MG,
     Route: 048
     Dates: start: 20000501, end: 20000501
  20. CICLOSPORIN [Suspect]
     Dosage: 200 MG,
     Route: 048
     Dates: start: 20000502, end: 20000502
  21. CICLOSPORIN [Suspect]
     Dosage: 150 MG,
     Route: 048
     Dates: start: 20000512, end: 20000512
  22. CICLOSPORIN [Suspect]
     Dosage: 130 MG,
     Route: 048
     Dates: start: 20000513, end: 20000530
  23. CICLOSPORIN [Suspect]
     Dosage: 160 MG,
     Route: 048
     Dates: start: 20000731, end: 20000803
  24. CICLOSPORIN [Suspect]
     Dosage: 150 MG,
     Dates: start: 20091127
  25. CICLOSPORIN [Suspect]
     Dosage: 130 MG,
     Dates: start: 20000616, end: 20000705
  26. CICLOSPORIN [Suspect]
     Dosage: 120 MG,
     Route: 048
     Dates: start: 20000821, end: 20000822
  27. CICLOSPORIN [Suspect]
     Dosage: 250 MG,
     Route: 048
     Dates: start: 20010206, end: 20010218
  28. CICLOSPORIN [Suspect]
     Indication: HEART TRANSPLANT
     Dosage: 75 MG,
     Route: 048
     Dates: start: 20000426, end: 20000430
  29. CICLOSPORIN [Suspect]
     Dosage: 140 MG,
     Dates: start: 20000722, end: 20000730
  30. CICLOSPORIN [Suspect]
     Dosage: 125 MG
     Route: 048
     Dates: start: 20050125, end: 20090716

REACTIONS (1)
  - OSTEONECROSIS [None]
